FAERS Safety Report 6107299-4 (Version None)
Quarter: 2009Q1

REPORT INFORMATION
  Report Type: 
  Country: None (occurrence: None)
  Receive Date: 20090305
  Receipt Date: 20090220
  Transmission Date: 20090719
  Serious: Yes (Other)
  Sender: FDA-Public Use
  Company Number: B0562261A

PATIENT
  Sex: 0

DRUGS (3)
  1. MELPHALAN (FORMULATION UNKNOWN) (GENERIC) (MELPHALAN) [Suspect]
  2. CARBOPLATIN [Suspect]
  3. ETOPOSIDE [Suspect]

REACTIONS (2)
  - HEPATOCELLULAR INJURY [None]
  - LIVER DISORDER [None]
